FAERS Safety Report 9278754 (Version 1)
Quarter: 2013Q2

REPORT INFORMATION
  Report Type: Spontaneous
  Country: None (occurrence: None)
  Receive Date: 20130501
  Receipt Date: 20130501
  Transmission Date: 20140414
  Serious: Yes (Hospitalization)
  Sender: FDA-Public Use
  Company Number: 1689647

PATIENT
  Age: 57 Year
  Sex: Male

DRUGS (3)
  1. CYTARABINE [Suspect]
     Indication: ACUTE MYELOID LEUKAEMIA
     Dosage: CYCLICAL
     Route: 042
     Dates: start: 20121011, end: 20121015
  2. DAUNORUBICIN HYDROCHLORIDE [Suspect]
     Indication: ACUTE MYELOID LEUKAEMIA
     Dosage: CYCLICAL
     Route: 042
     Dates: start: 20120605, end: 20120607
  3. DASATINIB [Suspect]
     Indication: ACUTE MYELOID LEUKAEMIA
     Dosage: CYCLICAL
     Route: 048
     Dates: start: 20121016, end: 20121107

REACTIONS (2)
  - Cellulitis [None]
  - General physical health deterioration [None]
